FAERS Safety Report 20757679 (Version 6)
Quarter: 2022Q4

REPORT INFORMATION
  Report Type: Report from Study
  Country: JP (occurrence: JP)
  Receive Date: 20220427
  Receipt Date: 20221110
  Transmission Date: 20230113
  Serious: Yes (Other)
  Sender: FDA-Public Use
  Company Number: JP-UCBSA-2022012287

PATIENT
  Age: 69 Year
  Sex: Female
  Weight: 63.8 kg

DRUGS (19)
  1. CIMZIA [Suspect]
     Active Substance: CERTOLIZUMAB PEGOL
     Indication: Psoriatic arthropathy
     Dosage: 400 MILLIGRAM, EV 2 WEEKS(QOW)
     Route: 058
     Dates: start: 20210112, end: 20220601
  2. CALONAL [Suspect]
     Active Substance: ACETAMINOPHEN
     Indication: Psoriatic arthropathy
     Dosage: 1500 MILLIGRAM, ONCE DAILY (QD)
     Route: 048
  3. AZULFIDINE EN-TABS [Suspect]
     Active Substance: SULFASALAZINE
     Indication: Psoriatic arthropathy
     Dosage: 1000 MILLIGRAM, ONCE DAILY (QD)
     Route: 048
  4. ASPIRIN\DIHYDROXYALUMINUM AMINOACETATE [Suspect]
     Active Substance: ASPIRIN\DIHYDROXYALUMINUM AMINOACETATE
     Indication: Product used for unknown indication
     Dosage: 3300 MILLIGRAM
  5. CLOBETASOL PROPIONATE [Concomitant]
     Active Substance: CLOBETASOL PROPIONATE
     Indication: Product used for unknown indication
     Route: 062
  6. CLOBETASOL PROPIONATE [Concomitant]
     Active Substance: CLOBETASOL PROPIONATE
     Indication: Psoriatic arthropathy
     Route: 062
  7. CLOBETASOL PROPIONATE [Concomitant]
     Active Substance: CLOBETASOL PROPIONATE
     Route: 062
  8. OLOPATADINE HYDROCHLORIDE OD [Concomitant]
     Indication: Product used for unknown indication
     Route: 048
     Dates: end: 20210531
  9. OLOPATADINE HYDROCHLORIDE OD [Concomitant]
     Indication: Psoriatic arthropathy
  10. GLYCOSAMINOGLYCANS [Concomitant]
     Active Substance: GLYCOSAMINOGLYCANS
     Indication: Product used for unknown indication
     Dosage: UNK
     Route: 062
  11. GLYCOSAMINOGLYCANS [Concomitant]
     Active Substance: GLYCOSAMINOGLYCANS
     Indication: Psoriatic arthropathy
     Route: 062
  12. GLYCOSAMINOGLYCANS [Concomitant]
     Active Substance: GLYCOSAMINOGLYCANS
     Route: 062
  13. IGURATIMOD [Concomitant]
     Active Substance: IGURATIMOD
     Indication: Product used for unknown indication
     Route: 048
  14. IGURATIMOD [Concomitant]
     Active Substance: IGURATIMOD
     Indication: Psoriatic arthropathy
  15. DIFLUCORTOLONE VALERATE [Concomitant]
     Active Substance: DIFLUCORTOLONE VALERATE
     Indication: Psoriatic arthropathy
     Route: 065
     Dates: start: 20210511
  16. BETAMETHASONE BUTYRATE PROPIONATE [Concomitant]
     Active Substance: BETAMETHASONE BUTYRATE PROPIONATE
     Indication: Psoriatic arthropathy
     Route: 065
     Dates: start: 20211012
  17. RUPAFIN [Concomitant]
     Active Substance: RUPATADINE FUMARATE
     Route: 048
     Dates: start: 20210601
  18. SAXIZON [Concomitant]
     Active Substance: HYDROCORTISONE SODIUM SUCCINATE
     Indication: Prophylaxis
     Route: 065
     Dates: start: 20220201, end: 20220201
  19. ZINC OXIDE [Concomitant]
     Active Substance: ZINC OXIDE
     Indication: Prophylaxis
     Route: 065
     Dates: start: 20220201, end: 20220214

REACTIONS (6)
  - Enteritis infectious [Recovered/Resolved]
  - Psoriasis [Recovered/Resolved]
  - Eczema [Recovering/Resolving]
  - Urticaria [Recovering/Resolving]
  - Pruritus [Recovered/Resolved]
  - Sneezing [Recovered/Resolved]

NARRATIVE: CASE EVENT DATE: 20210511
